FAERS Safety Report 21600484 (Version 2)
Quarter: 2022Q4

REPORT INFORMATION
  Report Type: Report from Study
  Country: FR (occurrence: FR)
  Receive Date: 20221116
  Receipt Date: 20221121
  Transmission Date: 20230113
  Serious: Yes (Death, Hospitalization, Other)
  Sender: FDA-Public Use
  Company Number: FR-BRISTOL-MYERS SQUIBB COMPANY-BMS-2022-000021

PATIENT
  Age: 60 Year
  Sex: Male

DRUGS (2)
  1. NIVOLUMAB [Suspect]
     Active Substance: NIVOLUMAB
     Indication: Squamous cell carcinoma of head and neck
     Dosage: FREQUENCY 15 DAYS
     Route: 065
     Dates: start: 20210428, end: 20210804
  2. NIVOLUMAB [Suspect]
     Active Substance: NIVOLUMAB
     Indication: Lip and/or oral cavity cancer

REACTIONS (3)
  - Colitis [Fatal]
  - Malignant neoplasm progression [Fatal]
  - Anal erythema [Fatal]

NARRATIVE: CASE EVENT DATE: 20210804
